FAERS Safety Report 9029647 (Version 1)
Quarter: 2013Q1

REPORT INFORMATION
  Report Type: Spontaneous
  Country: PL (occurrence: PL)
  Receive Date: 20130125
  Receipt Date: 20130125
  Transmission Date: 20140127
  Serious: Yes (Hospitalization, Other)
  Sender: FDA-Public Use
  Company Number: PL-VERTEX PHARMACEUTICALS INC.-2013-001121

PATIENT
  Age: 53 Year
  Sex: Female
  Weight: 58 kg

DRUGS (11)
  1. INCIVO [Suspect]
     Indication: HEPATITIS C
     Dosage: DOSAGE FORM: TABLET
     Route: 048
     Dates: start: 20110412, end: 201107
  2. PEGASYS [Suspect]
     Indication: HEPATITIS C
     Dosage: 180 ?G, QW
     Route: 058
  3. PEGASYS [Suspect]
     Dosage: 180 ?G, QW
     Route: 058
     Dates: start: 20110412
  4. PEGASYS [Suspect]
     Dosage: 135 ?G, QW
     Route: 058
  5. PEGASYS [Suspect]
     Dosage: 90 ?G, QW
     Route: 058
     Dates: end: 201109
  6. PEGASYS [Suspect]
     Dosage: 45 ?G, QW
     Route: 058
  7. PEGASYS [Suspect]
     Dosage: 90 ?G, QW
     Route: 058
  8. COPEGUS [Suspect]
     Indication: HEPATITIS C
     Route: 048
     Dates: end: 201109
  9. COPEGUS [Suspect]
     Dosage: 1800 MG, UNK
     Route: 048
     Dates: start: 20110412
  10. COPEGUS [Suspect]
     Dosage: 1000 MG, UNK
     Route: 048
  11. ZINACEF [Concomitant]
     Dosage: UNK, BID
     Route: 065

REACTIONS (9)
  - Neutropenia [Recovered/Resolved]
  - Asthenia [Recovered/Resolved]
  - Anaemia [Recovered/Resolved]
  - Thrombocytopenia [Recovered/Resolved]
  - Urinary tract infection [Recovered/Resolved]
  - Abdominal pain [Recovered/Resolved]
  - Nausea [Recovered/Resolved]
  - Rash [Recovered/Resolved]
  - Anal pruritus [Recovered/Resolved]
